FAERS Safety Report 5695380-3 (Version None)
Quarter: 2008Q1

REPORT INFORMATION
  Report Type: 
  Country: None (occurrence: None)
  Receive Date: 20080326
  Receipt Date: 20080313
  Transmission Date: 20080703
  Serious: Yes (Life-Threatening, Hospitalization, Other)
  Sender: FDA-Public Use
  Company Number: 200813112

PATIENT
  Age: 65 Year
  Sex: Female
  Weight: 108.1 kg

DRUGS (2)
  1. ALBUMINAR-25 [Suspect]
     Indication: MYASTHENIA GRAVIS
     Dosage: IV
     Route: 042
     Dates: start: 20080213, end: 20080213
  2. ALBUMINAR-25 [Suspect]
     Indication: PLASMAPHERESIS
     Dosage: IV
     Route: 042
     Dates: start: 20080213, end: 20080213

REACTIONS (9)
  - BLOOD FIBRINOGEN DECREASED [None]
  - BLOOD GLUCOSE INCREASED [None]
  - CATHETER SITE HAEMORRHAGE [None]
  - HAEMOLYSIS [None]
  - INTERNATIONAL NORMALISED RATIO INCREASED [None]
  - PLATELET COUNT DECREASED [None]
  - PROTHROMBIN TIME PROLONGED [None]
  - RECTAL HAEMORRHAGE [None]
  - UPPER GASTROINTESTINAL HAEMORRHAGE [None]
